FAERS Safety Report 17129030 (Version 2)
Quarter: 2019Q4

REPORT INFORMATION
  Report Type: Report from Study
  Country: US (occurrence: US)
  Receive Date: 20191209
  Receipt Date: 20191230
  Transmission Date: 20200122
  Serious: Yes (Hospitalization, Other)
  Sender: FDA-Public Use
  Company Number: US-ROCHE-2486917

PATIENT
  Sex: Female

DRUGS (1)
  1. PIRFENIDONE. [Suspect]
     Active Substance: PIRFENIDONE
     Indication: IDIOPATHIC PULMONARY FIBROSIS
     Route: 048

REACTIONS (8)
  - Fear [Unknown]
  - Depression [Unknown]
  - Malaise [Unknown]
  - Blindness [Unknown]
  - Gait inability [Unknown]
  - Pain [Unknown]
  - Muscle disorder [Unknown]
  - Fibrosis [Unknown]
